FAERS Safety Report 4286302-0 (Version None)
Quarter: 2004Q1

REPORT INFORMATION
  Report Type: 
  Country: None (occurrence: None)
  Receive Date: 20040129
  Receipt Date: 20030221
  Transmission Date: 20041129
  Serious: Yes (Hospitalization)
  Sender: FDA-Public Use
  Company Number: A001-002-005540

PATIENT
  Age: 82 Year
  Sex: Male

DRUGS (4)
  1. ARICEPT [Suspect]
     Indication: DEMENTIA ALZHEIMER'S TYPE
     Dosage: 5 MG, 1 IN 1 D; PER ORAL (SEE IMAGE)
     Route: 048
     Dates: start: 20020626, end: 20021025
  2. ARICEPT [Suspect]
     Indication: DEMENTIA ALZHEIMER'S TYPE
     Dosage: 5 MG, 1 IN 1 D; PER ORAL (SEE IMAGE)
     Route: 048
     Dates: start: 20021026, end: 20021101
  3. VITAMIN E [Concomitant]
  4. SYNTHROID [Concomitant]

REACTIONS (1)
  - SYNCOPE [None]
